FAERS Safety Report 15283493 (Version 2)
Quarter: 2018Q3

REPORT INFORMATION
  Report Type: Spontaneous
  Country: US (occurrence: US)
  Receive Date: 20180816
  Receipt Date: 20180817
  Transmission Date: 20181010
  Serious: No
  Sender: FDA-Public Use
  Company Number: US-PFIZER INC-2018325015

PATIENT
  Age: 70 Year
  Sex: Female
  Weight: 95.24 kg

DRUGS (1)
  1. CHANTIX [Suspect]
     Active Substance: VARENICLINE TARTRATE
     Indication: SMOKING CESSATION THERAPY
     Dosage: 1 MG, 2X/DAY [IN THE MORNING AND AT NIGHT]
     Route: 048
     Dates: start: 20180628

REACTIONS (1)
  - Fatigue [Not Recovered/Not Resolved]
